FAERS Safety Report 4577953-4 (Version None)
Quarter: 2005Q1

REPORT INFORMATION
  Report Type: 
  Country: None (occurrence: None)
  Receive Date: 20050211
  Receipt Date: 20050203
  Transmission Date: 20050727
  Serious: Yes (Other)
  Sender: FDA-Public Use
  Company Number: PHNU2005DE00850

PATIENT
  Age: 38 Year
  Sex: Female

DRUGS (2)
  1. CYCLO-PROGYNOVA /GFR/ [Concomitant]
  2. LAMISIL [Suspect]
     Indication: ONYCHOMYCOSIS
     Dosage: 250 MG, QD
     Route: 048
     Dates: start: 20050110, end: 20050130

REACTIONS (8)
  - ANGIONEUROTIC OEDEMA [None]
  - BONE PAIN [None]
  - C-REACTIVE PROTEIN INCREASED [None]
  - HLA MARKER STUDY [None]
  - JOINT STIFFNESS [None]
  - RHEUMATIC FEVER [None]
  - SYNOVITIS [None]
  - URTICARIA [None]
